FAERS Safety Report 4694607-4 (Version None)
Quarter: 2005Q2

REPORT INFORMATION
  Report Type: 
  Country: None (occurrence: None)
  Receive Date: 20050620
  Receipt Date: 20050610
  Transmission Date: 20051028
  Serious: Yes (Death)
  Sender: FDA-Public Use
  Company Number: 200511734JP

PATIENT
  Age: 31 Year
  Sex: Female

DRUGS (2)
  1. DOCETAXEL [Suspect]
     Indication: SQUAMOUS CELL CARCINOMA
     Route: 041
  2. IRINOTECAN [Suspect]
     Indication: SQUAMOUS CELL CARCINOMA
     Route: 041

REACTIONS (1)
  - TUMOUR LYSIS SYNDROME [None]
